FAERS Safety Report 6134309-0 (Version None)
Quarter: 2009Q1

REPORT INFORMATION
  Report Type: 
  Country: None (occurrence: None)
  Receive Date: 20090325
  Receipt Date: 20090312
  Transmission Date: 20090719
  Serious: Yes (Hospitalization)
  Sender: FDA-Public Use
  Company Number: WAES 0807AUS00208

PATIENT
  Age: 53 Year
  Sex: Male

DRUGS (15)
  1. ISENTRESS [Suspect]
     Indication: HIV INFECTION
     Dosage: 400 MG/BID PO
     Route: 048
     Dates: start: 20080312
  2. MARAVIROC [Suspect]
     Indication: HIV INFECTION
     Dosage: 600 MG/BID PO
     Route: 048
     Dates: start: 20080312
  3. ETRAVIRINE [Suspect]
     Indication: HIV INFECTION
     Dosage: 200 MG/BID PO
     Route: 048
     Dates: start: 20080312
  4. TENOFOVIR [Suspect]
     Indication: HIV INFECTION
     Dosage: 300 MG/DAILY PO
     Route: 048
     Dates: start: 20080312
  5. ABACAVIR SULFATE/LAMIVUDINE [Suspect]
     Indication: HIV INFECTION
     Dosage: 1 TAB/DAILY PO
     Route: 048
     Dates: start: 20080312
  6. LYRICA [Concomitant]
  7. SOMAC [Concomitant]
  8. AZITHROMYCIN [Concomitant]
  9. DOCUSATE NA [Concomitant]
  10. ESOMEPRAZOLE MAGNESIUM [Concomitant]
  11. FLUCONAZOLE [Concomitant]
  12. PRAZSOIN HCL [Concomitant]
  13. SOTALOL HCL [Concomitant]
  14. VALACYCLOVIR HC1 [Concomitant]
  15. VALPROATE SODIUM [Concomitant]

REACTIONS (6)
  - ALANINE AMINOTRANSFERASE INCREASED [None]
  - ASPARTATE AMINOTRANSFERASE [None]
  - BLOOD CREATINE PHOSPHOKINASE INCREASED [None]
  - BLOOD LACTATE DEHYDROGENASE INCREASED [None]
  - BLOOD URIC ACID INCREASED [None]
  - POLYARTHRITIS [None]
